FAERS Safety Report 4393245-0 (Version None)
Quarter: 2004Q3

REPORT INFORMATION
  Report Type: 
  Country: None (occurrence: None)
  Receive Date: 20040701
  Receipt Date: 20040621
  Transmission Date: 20050211
  Serious: Yes (Death, Life-Threatening)
  Sender: FDA-Public Use
  Company Number: 2004-DE-03376GD

PATIENT
  Age: 43 Year
  Sex: Female

DRUGS (12)
  1. FUROSEMIDE [Suspect]
  2. SPIRONOLACTONE [Concomitant]
  3. BECLOMETHASONE (BECLOMETASONE) [Concomitant]
  4. CEFUROXINE (CEFUROXIME) [Concomitant]
  5. DESMOPRESSIN (DESMOPRESSIN) [Concomitant]
  6. DIPHTHERIA-TETANUS VACCINE (DIPHTHERIA AND TETANUS TOXOIDS) [Concomitant]
  7. HEPATITIS B VACCINE (HEPATITIS B VACCINE) [Concomitant]
  8. OMEPRAZOLE [Concomitant]
  9. PHYTONADIONE [Concomitant]
  10. PNEUMOCOCCAL VACCINE (PNEUMOCOCCAL VACCINE) [Concomitant]
  11. PURIFIED PROTEIN DERIVATIVE (PROTEIN SUPPLEMENTS) [Concomitant]
  12. SALBUTAMOL (SALBUTAMOL) [Concomitant]

REACTIONS (1)
  - TOXIC EPIDERMAL NECROLYSIS [None]
